FAERS Safety Report 24742469 (Version 1)
Quarter: 2024Q4

REPORT INFORMATION
  Report Type: Spontaneous
  Country: US (occurrence: US)
  Receive Date: 20241217
  Receipt Date: 20241217
  Transmission Date: 20250115
  Serious: Yes (Other)
  Sender: AMGEN
  Company Number: US-AMGEN-USASP2024245144

PATIENT

DRUGS (5)
  1. CARFILZOMIB [Suspect]
     Active Substance: CARFILZOMIB
     Indication: Plasma cell myeloma
     Dosage: UNK
     Route: 065
  2. ULOCUPLUMAB [Suspect]
     Active Substance: ULOCUPLUMAB
     Indication: Plasma cell myeloma
     Dosage: 10 MILLIGRAM/KILOGRAM (1,3 ULOCUPLUMAB WAS ADMINISTERED AS MONOTHERAPY ON DAYS 1 AND 8.)
     Route: 065
  3. LENALIDOMIDE [Suspect]
     Active Substance: LENALIDOMIDE
     Indication: Plasma cell myeloma
     Dosage: 25 MILLIGRAM (25 MG/D/21 DAYS OF A 28 DAY CYCLE]
     Route: 065
  4. DEXAMETHASONE [Suspect]
     Active Substance: DEXAMETHASONE
     Indication: Plasma cell myeloma
     Dosage: 40 MILLIGRAM (40 MG/WEEK]/[DAYS 1,2,4,5,8,9,11,12]
     Route: 065
  5. BORTEZOMIB [Suspect]
     Active Substance: BORTEZOMIB
     Indication: Plasma cell myeloma
     Dosage: 1.3 MILLIGRAM/SQ. METER (DAYS 1, 4, 8, 11 OF A 21 DAY CYCLE]
     Route: 065

REACTIONS (9)
  - Femur fracture [Unknown]
  - Anaemia [Unknown]
  - Respiratory tract infection [Unknown]
  - Thrombocytopenia [Unknown]
  - Lymphopenia [Unknown]
  - Cerebrovascular accident [Unknown]
  - Neutrophil count decreased [Unknown]
  - Platelet count decreased [Unknown]
  - Toxicity to various agents [Unknown]
